FAERS Safety Report 23551368 (Version 1)
Quarter: 2024Q1

REPORT INFORMATION
  Report Type: Report from Study
  Country: CO (occurrence: CO)
  Receive Date: 20240222
  Receipt Date: 20240222
  Transmission Date: 20240410
  Serious: Yes (Life-Threatening)
  Sender: FDA-Public Use
  Company Number: CO-NOVOPROD-1178105

PATIENT
  Age: 56 Year
  Sex: Female
  Weight: 59 kg

DRUGS (5)
  1. LOSARTAN [Concomitant]
     Active Substance: LOSARTAN
     Indication: Hypertension
     Dosage: 2 TABLETS
     Route: 048
     Dates: start: 2014
  2. AMLODIPINE [Concomitant]
     Active Substance: AMLODIPINE BESYLATE
     Indication: Hypertension
     Dosage: 1 TABLET, QD
     Route: 048
     Dates: start: 2014
  3. THYROXINE [Concomitant]
     Active Substance: LEVOTHYROXINE
     Indication: Hypothyroidism
     Dosage: 1 TABLET, QD
     Route: 048
     Dates: start: 2018
  4. OMEPRAZOLE [Concomitant]
     Active Substance: OMEPRAZOLE
     Indication: Chronic gastritis
     Dosage: 1 TABLET, QD
     Route: 048
     Dates: start: 2018
  5. OZEMPIC [Suspect]
     Active Substance: SEMAGLUTIDE
     Indication: Type 2 diabetes mellitus
     Dosage: 0.5 MG
     Route: 058
     Dates: start: 20240201

REACTIONS (6)
  - Nausea [Not Recovered/Not Resolved]
  - Blood glucose increased [Unknown]
  - Flatulence [Unknown]
  - Asthenia [Not Recovered/Not Resolved]
  - Vision blurred [Not Recovered/Not Resolved]
  - Eye irritation [Not Recovered/Not Resolved]

NARRATIVE: CASE EVENT DATE: 20240201
